FAERS Safety Report 5518272-9 (Version None)
Quarter: 2007Q4

REPORT INFORMATION
  Report Type: 
  Country: None (occurrence: None)
  Receive Date: 20071115
  Receipt Date: 20071107
  Transmission Date: 20080405
  Serious: Yes (Other)
  Sender: FDA-Public Use
  Company Number: B0494935A

PATIENT
  Age: 79 Year
  Sex: Female

DRUGS (4)
  1. ROSIGLITAZONE [Suspect]
     Route: 065
  2. METFORMIN HCL [Concomitant]
  3. LASIX [Concomitant]
     Route: 065
  4. ANTIHYPERTENSIVE (UNSPECIFIED) [Concomitant]

REACTIONS (5)
  - CARDIAC FAILURE [None]
  - CHEST DISCOMFORT [None]
  - DECREASED ACTIVITY [None]
  - DYSPNOEA [None]
  - HYPERTROPHIC CARDIOMYOPATHY [None]
